FAERS Safety Report 6468234-2 (Version None)
Quarter: 2009Q4

REPORT INFORMATION
  Report Type: 
  Country: None (occurrence: None)
  Receive Date: 20091124
  Receipt Date: 20091110
  Transmission Date: 20100525
  Serious: Yes (Other)
  Sender: FDA-Public Use
  Company Number: B0606097A

PATIENT
  Sex: 0

DRUGS (3)
  1. AMPRENAVIR            (FORMULATION UNKNOWN) (GENERIC) (AMPRENAVIR) [Suspect]
     Indication: HIV INFECTION
  2. RITONAVIR [Suspect]
     Indication: HIV INFECTION
  3. IMMUNOSUPPRESSIVE (FORMULATION UNKNOWN) (IMMUNOSUPPRESSIVE) [Suspect]

REACTIONS (2)
  - DRUG INTERACTION [None]
  - RENAL FAILURE ACUTE [None]
